FAERS Safety Report 7016011-6 (Version None)
Quarter: 2010Q3

REPORT INFORMATION
  Report Type: 
  Country: None (occurrence: None)
  Receive Date: 20100922
  Receipt Date: 20100909
  Transmission Date: 20110219
  Serious: Yes (Death, Life-Threatening)
  Sender: FDA-Public Use
  Company Number: 2010AP001952

PATIENT
  Age: 29 Year
  Sex: Male

DRUGS (3)
  1. CITALOPRAM HYDROBROMIDE [Suspect]
     Indication: PRODUCT USED FOR UNKNOWN INDICATION
  2. CLOZAPINE [Suspect]
     Indication: PRODUCT USED FOR UNKNOWN INDICATION
  3. MORPHINE [Suspect]
     Indication: PRODUCT USED FOR UNKNOWN INDICATION

REACTIONS (8)
  - ASPIRATION [None]
  - CHOKING [None]
  - DRUG TOXICITY [None]
  - FAECALOMA [None]
  - GASTROINTESTINAL HYPOMOTILITY [None]
  - ILEUS PARALYTIC [None]
  - INTESTINAL PERFORATION [None]
  - NECROTISING COLITIS [None]
